FAERS Safety Report 11432958 (Version 3)
Quarter: 2019Q4

REPORT INFORMATION
  Report Type: Spontaneous
  Country: US (occurrence: US)
  Receive Date: 20150828
  Receipt Date: 20191216
  Transmission Date: 20200122
  Serious: Yes (Death)
  Sender: FDA-Public Use
  Company Number: US-UCBSA-2015027472

PATIENT
  Age: 32 Year
  Sex: Female
  Weight: 69.84 kg

DRUGS (6)
  1. VIMPAT [Suspect]
     Active Substance: LACOSAMIDE
     Indication: SEIZURE
     Dosage: 150MG AM AND 200MG IN EVENING, 2X/DAY (BID)
     Route: 048
     Dates: start: 201308, end: 20150825
  2. KEPPRA XR [Suspect]
     Active Substance: LEVETIRACETAM
     Indication: SEIZURE
     Dosage: 1500 MG, 2X/DAY (BID); (750MG 2 TABS TWICE DAILY)
     Route: 048
     Dates: start: 201304, end: 20150825
  3. ATIVAN [Concomitant]
     Active Substance: LORAZEPAM
     Indication: SEIZURE
     Dosage: AS NEEDED
     Route: 048
     Dates: end: 20150825
  4. TRAZODONE [Concomitant]
     Active Substance: TRAZODONE HYDROCHLORIDE
     Indication: INSOMNIA
     Dosage: BED TIME
     Route: 048
     Dates: end: 20150825
  5. MULTIVITAMIN [Concomitant]
     Active Substance: VITAMINS
     Indication: SUPPLEMENTATION THERAPY
     Dosage: UNK
     Dates: end: 20150825
  6. MAGNESIUM [Concomitant]
     Active Substance: MAGNESIUM
     Indication: SUPPLEMENTATION THERAPY
     Dosage: DAILY
     Route: 048
     Dates: end: 20150825

REACTIONS (2)
  - Inappropriate schedule of product administration [Unknown]
  - Seizure [Fatal]

NARRATIVE: CASE EVENT DATE: 201304
